FAERS Safety Report 7591678 (Version 3)
Quarter: 2012Q4

REPORT INFORMATION
  Report Type: 
  Country: US (occurrence: US)
  Receive Date: 20100917
  Receipt Date: 20121226
  Transmission Date: 20130627
  Serious: Yes (Hospitalization)
  Sender: FDA-Public Use
  Company Number: US-ASTRAZENECA-2010SE23566

PATIENT
  Age: 54 Year
  Sex: Male
  Weight: 117.9 kg

DRUGS (7)
  1. SEROQUEL [Suspect]
     Indication: BIPOLAR DISORDER
     Route: 048
  2. SEROQUEL [Suspect]
     Indication: BIPOLAR DISORDER
     Route: 048
     Dates: end: 2004
  3. SEROQUEL [Suspect]
     Indication: BIPOLAR DISORDER
     Route: 048
     Dates: start: 2010
  4. SEROQUEL [Suspect]
     Indication: BIPOLAR DISORDER
     Route: 048
  5. SEROQUEL [Suspect]
     Indication: BIPOLAR DISORDER
     Route: 048
  6. LISINOPRIL [Concomitant]
     Indication: BLOOD PRESSURE ABNORMAL
  7. CLONAZEPAM [Concomitant]

REACTIONS (14)
  - Hypertension [Unknown]
  - Psychotic disorder [Recovered/Resolved]
  - Pain in extremity [Unknown]
  - Insomnia [Unknown]
  - Apathy [Unknown]
  - Physical assault [Unknown]
  - Depression [Unknown]
  - Depersonalisation [Unknown]
  - Multiple injuries [Unknown]
  - Rosacea [Unknown]
  - Nervous system disorder [Unknown]
  - Irritability [Unknown]
  - Intentional drug misuse [Unknown]
  - Drug dose omission [Unknown]
